FAERS Safety Report 7597239-3 (Version None)
Quarter: 2011Q3

REPORT INFORMATION
  Report Type: 
  Country: None (occurrence: None)
  Receive Date: 20110708
  Receipt Date: 20101129
  Transmission Date: 20111222
  Serious: No
  Sender: FDA-Public Use
  Company Number: US-GLAXOSMITHKLINE-A0896720A

PATIENT
  Age: 54 Year
  Sex: Female

DRUGS (3)
  1. FLOVENT [Suspect]
     Indication: ASTHMA
     Dosage: 2PUFF TWICE PER DAY
     Route: 055
     Dates: start: 20101122
  2. LEVOTHYROXINE SODIUM [Concomitant]
  3. ALBUTEROL SULFATE AUTOHALER [Concomitant]

REACTIONS (3)
  - PAINFUL RESPIRATION [None]
  - DYSPEPSIA [None]
  - OESOPHAGEAL IRRITATION [None]
